FAERS Safety Report 4805714-7 (Version None)
Quarter: 2005Q4

REPORT INFORMATION
  Report Type: 
  Country: None (occurrence: None)
  Receive Date: 20051021
  Receipt Date: 20051013
  Transmission Date: 20060501
  Serious: Yes (Other)
  Sender: FDA-Public Use
  Company Number: GB-JNJFOC-20051002865

PATIENT
  Sex: Female

DRUGS (1)
  1. REMICADE [Suspect]
     Indication: SWEAT GLAND DISORDER
     Dosage: 2 INFUSIONS.
     Route: 042

REACTIONS (1)
  - VISION BLURRED [None]
